FAERS Safety Report 12805761 (Version 1)
Quarter: 2016Q4

REPORT INFORMATION
  Report Type: Spontaneous
  Country: US (occurrence: US)
  Receive Date: 20161003
  Receipt Date: 20161003
  Transmission Date: 20170207
  Serious: Yes (Disabling, Other)
  Sender: FDA-Public Use
  Company Number: None

PATIENT
  Sex: Male
  Weight: 76.5 kg

DRUGS (1)
  1. MEFLOQUINE [Suspect]
     Active Substance: MEFLOQUINE
     Indication: MALARIA PROPHYLAXIS
     Route: 048
     Dates: start: 20140525, end: 20140801

REACTIONS (7)
  - Angina pectoris [None]
  - Anxiety [None]
  - Chest pain [None]
  - Panic attack [None]
  - Tremor [None]
  - Dizziness [None]
  - Syncope [None]
